FAERS Safety Report 24116016 (Version 1)
Quarter: 2024Q3

REPORT INFORMATION
  Report Type: Spontaneous
  Country: SE (occurrence: SE)
  Receive Date: 20240722
  Receipt Date: 20240722
  Transmission Date: 20241016
  Serious: Yes (Other)
  Sender: UCB
  Company Number: SE-UCBSA-2024036323

PATIENT
  Sex: Female

DRUGS (1)
  1. BRIVIACT [Suspect]
     Active Substance: BRIVARACETAM
     Indication: Epilepsy
     Dosage: UNK
     Route: 065

REACTIONS (3)
  - Epilepsy [Unknown]
  - Fatigue [Unknown]
  - Diarrhoea [Unknown]
